FAERS Safety Report 9094929 (Version 1)
Quarter: 2013Q1

REPORT INFORMATION
  Report Type: Spontaneous
  Country: US (occurrence: None)
  Receive Date: 20130214
  Receipt Date: 20130214
  Transmission Date: 20140127
  Serious: Yes (Disabling)
  Sender: FDA-Public Use
  Company Number: None

PATIENT
  Age: 63 Year
  Sex: Male
  Weight: 67.13 kg

DRUGS (1)
  1. OPTIMARK UNKNOWN OPTIMARK [Suspect]
     Dosage: 14 CC
     Dates: start: 20120215, end: 20120215

REACTIONS (8)
  - Back pain [None]
  - Muscular weakness [None]
  - Urinary tract disorder [None]
  - Functional gastrointestinal disorder [None]
  - Hypoacusis [None]
  - Hypoaesthesia [None]
  - Muscle spasms [None]
  - Arachnoiditis [None]
